FAERS Safety Report 18249452 (Version 1)
Quarter: 2020Q3

REPORT INFORMATION
  Report Type: Spontaneous
  Country: None (occurrence: US)
  Receive Date: 20200910
  Receipt Date: 20200910
  Transmission Date: 20201103
  Serious: No
  Sender: FDA-Public Use
  Company Number: US-DECIPHERA PHARMACEUTICALS LLC-2020-US-000379

PATIENT
  Sex: Female

DRUGS (1)
  1. QINLOCK [Suspect]
     Active Substance: RIPRETINIB
     Indication: GASTROINTESTINAL STROMAL TUMOUR
     Dosage: UNK
     Route: 048

REACTIONS (11)
  - Somnolence [Unknown]
  - Dry skin [Unknown]
  - Therapeutic response unexpected [Unknown]
  - Hair texture abnormal [Unknown]
  - Pruritus [Unknown]
  - Hair colour changes [Unknown]
  - Nausea [Unknown]
  - Alopecia [Unknown]
  - Headache [Unknown]
  - Abdominal pain [Unknown]
  - Asthenia [Unknown]
